FAERS Safety Report 25201750 (Version 2)
Quarter: 2025Q2

REPORT INFORMATION
  Report Type: Spontaneous
  Country: US (occurrence: US)
  Receive Date: 20250416
  Receipt Date: 20250502
  Transmission Date: 20250717
  Serious: Yes (Death)
  Sender: ABBVIE
  Company Number: US-ABBVIE-6233689

PATIENT
  Sex: Male

DRUGS (1)
  1. SYNTHROID [Suspect]
     Active Substance: LEVOTHYROXINE SODIUM
     Indication: Hypothyroidism
     Route: 048
     Dates: end: 201601

REACTIONS (5)
  - Malnutrition [Fatal]
  - Weight decreased [Fatal]
  - Autoimmune disorder [Fatal]
  - Pain [Fatal]
  - Feeding disorder [Fatal]
